FAERS Safety Report 20901173 (Version 1)
Quarter: 2022Q2

REPORT INFORMATION
  Report Type: Spontaneous
  Country: US (occurrence: US)
  Receive Date: 20220601
  Receipt Date: 20220601
  Transmission Date: 20220720
  Serious: No
  Sender: FDA-Public Use
  Company Number: US-Covis Pharma GmbH-2022COV01514

PATIENT
  Sex: Female

DRUGS (1)
  1. ALVESCO [Suspect]
     Active Substance: CICLESONIDE
     Indication: Chronic obstructive pulmonary disease
     Route: 065

REACTIONS (4)
  - Dyspnoea [Unknown]
  - Asthenia [Unknown]
  - Product dose omission issue [Unknown]
  - Off label use [Unknown]
